FAERS Safety Report 8927749 (Version 1)
Quarter: 2012Q4

REPORT INFORMATION
  Report Type: 
  Country: US (occurrence: US)
  Receive Date: 20121127
  Receipt Date: 20121127
  Transmission Date: 20130627
  Serious: No
  Sender: FDA-Public Use
  Company Number: US-JNJFOC-20121108176

PATIENT
  Sex: Female
  Weight: 70.31 kg

DRUGS (3)
  1. DURAGESIC [Suspect]
     Indication: ROAD TRAFFIC ACCIDENT
     Route: 062
  2. DURAGESIC [Suspect]
     Indication: ROAD TRAFFIC ACCIDENT
     Route: 062
  3. MORPHINE SULFATE [Suspect]
     Indication: PAIN
     Route: 065

REACTIONS (7)
  - Pain [Not Recovered/Not Resolved]
  - Body height decreased [Not Recovered/Not Resolved]
  - Product quality issue [Unknown]
  - Agitation [Not Recovered/Not Resolved]
  - Panic reaction [Not Recovered/Not Resolved]
  - Product packaging issue [Unknown]
  - Inappropriate schedule of drug administration [Unknown]
